FAERS Safety Report 18355983 (Version 4)
Quarter: 2021Q2

REPORT INFORMATION
  Report Type: Spontaneous
  Country: US (occurrence: US)
  Receive Date: 20201007
  Receipt Date: 20210521
  Transmission Date: 20210717
  Serious: Yes (Death, Hospitalization, Other)
  Sender: FDA-Public Use
  Company Number: US-ASTRAZENECA-2020SF28095

PATIENT
  Age: 22536 Day
  Sex: Female

DRUGS (37)
  1. CITALOPRAM [Concomitant]
     Active Substance: CITALOPRAM HYDROBROMIDE
  2. PRILOSEC OTC [Suspect]
     Active Substance: OMEPRAZOLE MAGNESIUM
     Indication: DYSPEPSIA
     Route: 048
     Dates: start: 199001, end: 201810
  3. ALKA?SELTZER [Concomitant]
     Active Substance: ANHYDROUS CITRIC ACID\ASPIRIN\SODIUM BICARBONATE
  4. NYSTATIN. [Concomitant]
     Active Substance: NYSTATIN
  5. MORPHINE SULFATE. [Concomitant]
     Active Substance: MORPHINE SULFATE
  6. LITHIUM CARBONATE. [Concomitant]
     Active Substance: LITHIUM CARBONATE
  7. LITHIUM. [Concomitant]
     Active Substance: LITHIUM
     Indication: DEPRESSION
     Dates: start: 2012
  8. TRAMADOL. [Concomitant]
     Active Substance: TRAMADOL
     Indication: PAIN
     Dates: start: 2013
  9. MELOXICAM. [Concomitant]
     Active Substance: MELOXICAM
     Indication: PAIN
     Dates: start: 2013
  10. HALOPERIDOL. [Concomitant]
     Active Substance: HALOPERIDOL
     Indication: AFFECTIVE DISORDER
     Dates: start: 2018
  11. ACETAMINOPHEN. [Concomitant]
     Active Substance: ACETAMINOPHEN
  12. METRONIDAZOLE. [Concomitant]
     Active Substance: METRONIDAZOLE
  13. LACTULOSE. [Concomitant]
     Active Substance: LACTULOSE
  14. PRILOSEC [Suspect]
     Active Substance: OMEPRAZOLE MAGNESIUM
     Indication: DYSPEPSIA
     Dosage: GENERIC
     Route: 065
     Dates: start: 2018
  15. PRILOSEC OTC [Suspect]
     Active Substance: OMEPRAZOLE MAGNESIUM
     Indication: DYSPEPSIA
     Route: 048
     Dates: start: 2013, end: 2018
  16. TRIAZOLAM. [Concomitant]
     Active Substance: TRIAZOLAM
  17. LEVOFLOXACIN. [Concomitant]
     Active Substance: LEVOFLOXACIN
  18. NEXIUM [Suspect]
     Active Substance: ESOMEPRAZOLE MAGNESIUM
     Indication: DYSPEPSIA
     Route: 048
     Dates: start: 199001, end: 201810
  19. FUROSEMIDE. [Concomitant]
     Active Substance: FUROSEMIDE
     Indication: HYPERTENSION
     Dates: start: 2018
  20. PEPCID AC [Concomitant]
     Active Substance: FAMOTIDINE
  21. TAGAMET HB [Concomitant]
     Active Substance: CIMETIDINE
  22. TUMS [Concomitant]
     Active Substance: CALCIUM CARBONATE
  23. MILK OF MAGNESIA [Concomitant]
     Active Substance: MAGNESIUM HYDROXIDE
  24. LORAZEPAM. [Concomitant]
     Active Substance: LORAZEPAM
  25. NEXIUM [Suspect]
     Active Substance: ESOMEPRAZOLE MAGNESIUM
     Indication: DYSPEPSIA
     Route: 048
     Dates: start: 2001, end: 2018
  26. PREVACID IV [Suspect]
     Active Substance: LANSOPRAZOLE
     Indication: DYSPEPSIA
     Route: 065
  27. DOXYCYCLINE. [Concomitant]
     Active Substance: DOXYCYCLINE
     Indication: INFECTION
     Dates: start: 2010
  28. KETOROLAC [Concomitant]
     Active Substance: KETOROLAC TROMETHAMINE
     Indication: PAIN
     Dates: start: 2013
  29. NAPROXEN. [Concomitant]
     Active Substance: NAPROXEN
     Indication: PAIN
     Dates: start: 2014
  30. LEVOFLOXACIN. [Concomitant]
     Active Substance: LEVOFLOXACIN
     Indication: INFECTION
     Dates: start: 2018
  31. ZOLPIDEM TARTRATE. [Concomitant]
     Active Substance: ZOLPIDEM TARTRATE
  32. OXYCODONE HYDROCHLORIDE. [Concomitant]
     Active Substance: OXYCODONE HYDROCHLORIDE
  33. PROCHLORPERAZINE. [Concomitant]
     Active Substance: PROCHLORPERAZINE
  34. PRILOSEC [Suspect]
     Active Substance: OMEPRAZOLE MAGNESIUM
     Indication: DYSPEPSIA
     Route: 048
     Dates: start: 199001, end: 201810
  35. PRILOSEC [Suspect]
     Active Substance: OMEPRAZOLE MAGNESIUM
     Indication: DYSPEPSIA
     Route: 048
     Dates: start: 1990, end: 2018
  36. ZANTAC [Concomitant]
     Active Substance: RANITIDINE HYDROCHLORIDE
  37. SPIRONOLACTONE. [Concomitant]
     Active Substance: SPIRONOLACTONE

REACTIONS (3)
  - Chronic kidney disease [Fatal]
  - Renal failure [Unknown]
  - Acute kidney injury [Unknown]

NARRATIVE: CASE EVENT DATE: 20180829
